FAERS Safety Report 9404658 (Version 1)
Quarter: 2013Q3

REPORT INFORMATION
  Report Type: Spontaneous
  Country: US (occurrence: None)
  Receive Date: 20130716
  Receipt Date: 20130716
  Transmission Date: 20140515
  Serious: Yes (Life-Threatening)
  Sender: FDA-Public Use
  Company Number: None

PATIENT
  Age: 57 Year
  Sex: Male

DRUGS (1)
  1. BUPIVACAINE/FENTANYL [Suspect]
     Indication: PAIN
     Dates: start: 20130514, end: 20130515

REACTIONS (3)
  - Dyspnoea [None]
  - Apnoea [None]
  - Muscular weakness [None]
